FAERS Safety Report 26005926 (Version 1)
Quarter: 2025Q4

REPORT INFORMATION
  Report Type: Spontaneous
  Country: US (occurrence: US)
  Receive Date: 20251106
  Receipt Date: 20251106
  Transmission Date: 20260117
  Serious: No
  Sender: GILEAD
  Company Number: US-GILEAD-2025-0735052

PATIENT
  Age: 55 Year
  Sex: Female

DRUGS (1)
  1. LENACAPAVIR [Suspect]
     Active Substance: LENACAPAVIR
     Indication: HIV infection
     Dosage: INJECT 927MG UNDER THE SKIN EVERY 6 MONTHS
     Route: 058
     Dates: start: 202510

REACTIONS (1)
  - Intentional dose omission [Unknown]
